FAERS Safety Report 6636961-X (Version None)
Quarter: 2010Q1

REPORT INFORMATION
  Report Type: 
  Country: None (occurrence: None)
  Receive Date: 20100316
  Receipt Date: 20100305
  Transmission Date: 20100710
  Serious: Yes (Hospitalization)
  Sender: FDA-Public Use
  Company Number: DE-MILLENNIUM PHARMACEUTICALS, INC.-2010-00839

PATIENT

DRUGS (6)
  1. VELCADE [Suspect]
     Indication: MULTIPLE MYELOMA
     Dosage: 2.6 MG, CYCLIC
     Route: 042
     Dates: start: 20090922
  2. VELCADE [Suspect]
     Dosage: UNK
     Dates: start: 20100105
  3. DEXAMETHASONE [Concomitant]
     Indication: MULTIPLE MYELOMA
     Dosage: 20 MG, UNK
     Route: 048
     Dates: start: 20090922, end: 20091204
  4. DEXAMETHASONE [Concomitant]
     Dosage: 20 MG, CYCLIC
     Route: 048
     Dates: start: 20100105
  5. MELPHALAN [Concomitant]
     Indication: MULTIPLE MYELOMA
     Dosage: 30 MG, UNK
     Route: 042
     Dates: start: 20090922, end: 20091113
  6. MELPHALAN [Concomitant]
     Dosage: 30 MG, CYCLIC
     Route: 042
     Dates: start: 20100105

REACTIONS (1)
  - CONDITION AGGRAVATED [None]
